FAERS Safety Report 9696904 (Version 3)
Quarter: 2015Q3

REPORT INFORMATION
  Report Type: Spontaneous
  Country: US (occurrence: US)
  Receive Date: 20131119
  Receipt Date: 20150803
  Transmission Date: 20151125
  Serious: Yes (Hospitalization)
  Sender: FDA-Public Use
  Company Number: US-GILEAD-2007-0013643

PATIENT

DRUGS (11)
  1. LEVOTHYROXINE. [Concomitant]
     Active Substance: LEVOTHYROXINE
  2. VERAPAMIL [Concomitant]
     Active Substance: VERAPAMIL HYDROCHLORIDE
  3. LETAIRIS [Suspect]
     Active Substance: AMBRISENTAN
     Indication: PULMONARY ARTERIAL HYPERTENSION
     Dates: start: 20070831
  4. LASIX [Concomitant]
     Active Substance: FUROSEMIDE
  5. OMEPRAZOLE. [Concomitant]
     Active Substance: OMEPRAZOLE
  6. REVATIO [Concomitant]
     Active Substance: SILDENAFIL CITRATE
  7. WARFARIN [Concomitant]
     Active Substance: WARFARIN
  8. SPIRONOLACTONE. [Concomitant]
     Active Substance: SPIRONOLACTONE
  9. METOPROLOL [Concomitant]
     Active Substance: METOPROLOL
  10. COLCHICINE. [Concomitant]
     Active Substance: COLCHICINE
  11. PROBENECID. [Concomitant]
     Active Substance: PROBENECID

REACTIONS (1)
  - Dyspnoea [Not Recovered/Not Resolved]
